FAERS Safety Report 8830197 (Version 1)
Quarter: 2012Q4

REPORT INFORMATION
  Report Type: 
  Country: US (occurrence: US)
  Receive Date: 20121008
  Receipt Date: 20121008
  Transmission Date: 20130627
  Serious: Yes (Disabling, Other)
  Sender: FDA-Public Use
  Company Number: US-SANOFI-AVENTIS-2012SA070872

PATIENT
  Age: 57 Year
  Sex: Male

DRUGS (1)
  1. ZOLPIDEM TARTRATE [Suspect]
     Route: 048
     Dates: start: 201011, end: 201011

REACTIONS (15)
  - Face injury [Unknown]
  - Skin maceration [Unknown]
  - Contusion [Unknown]
  - Eye injury [Unknown]
  - Eye pain [Not Recovered/Not Resolved]
  - Lid sulcus deepened [Not Recovered/Not Resolved]
  - Eyelid ptosis [Not Recovered/Not Resolved]
  - Fall [Unknown]
  - Neck injury [Unknown]
  - Foot fracture [Unknown]
  - Joint dislocation [Not Recovered/Not Resolved]
  - Pain [Not Recovered/Not Resolved]
  - Muscle rupture [Unknown]
  - Somnambulism [Unknown]
  - Fear [Unknown]
